FAERS Safety Report 8582824-2 (Version None)
Quarter: 2012Q3

REPORT INFORMATION
  Report Type: 
  Country: None (occurrence: None)
  Receive Date: 20120809
  Receipt Date: 20120801
  Transmission Date: 20120928
  Serious: Yes (Hospitalization, Disabling)
  Sender: FDA-Public Use
  Company Number: BR-GENZYME-FABR-1002505

PATIENT
  Sex: Male
  Weight: 80 kg

DRUGS (10)
  1. EVEROLIMUS [Concomitant]
     Indication: PRODUCT USED FOR UNKNOWN INDICATION
     Dosage: 1 MG, BID
     Route: 065
  2. FABRAZYME [Suspect]
     Indication: FABRY'S DISEASE
     Dosage: 70 MG, Q2W
     Route: 042
     Dates: start: 20050101
  3. SPIRONOLACTONE [Concomitant]
     Indication: PROPHYLAXIS
  4. CLONIDINE [Concomitant]
     Indication: HYPERTENSION
     Dosage: 0.100 MG, QD
     Route: 042
  5. SPIRONOLACTONE [Concomitant]
     Indication: HYPERTENSION
     Dosage: 25 MG, QD
     Route: 065
  6. MYCOPHENOLATE MOFETIL [Concomitant]
     Indication: PRODUCT USED FOR UNKNOWN INDICATION
     Dosage: 180 MG, BID
     Route: 065
  7. METFORMIN HYDROCHLORIDE [Concomitant]
     Indication: DIABETES MELLITUS
     Dosage: 850 MG, BID
     Route: 065
  8. AMLODIPINE [Concomitant]
     Indication: HYPERTENSION
     Dosage: 7.5 MG, QD
     Route: 065
  9. PREDNISONE TAB [Concomitant]
     Indication: IMMUNOMODULATORY THERAPY
     Dosage: 5 MG, QOD
     Route: 065
  10. CAPTOPRIL [Concomitant]
     Indication: HYPERTENSION
     Dosage: 25 MG, BID
     Route: 065

REACTIONS (1)
  - HAEMORRHAGIC STROKE [None]
